FAERS Safety Report 15428570 (Version 1)
Quarter: 2018Q3

REPORT INFORMATION
  Report Type: Spontaneous
  Country: US (occurrence: US)
  Receive Date: 20180926
  Receipt Date: 20180926
  Transmission Date: 20181010
  Serious: No
  Sender: FDA-Public Use
  Company Number: US-AMGEN-USASP2018132651

PATIENT
  Sex: Female

DRUGS (3)
  1. LISINOPRIL. [Concomitant]
     Active Substance: LISINOPRIL
     Dosage: 5 MG, UNK
  2. ENBREL [Suspect]
     Active Substance: ETANERCEPT
     Indication: RHEUMATOID ARTHRITIS
     Dosage: UNK, UNK
     Route: 065
     Dates: start: 201808
  3. PREDNISONE. [Concomitant]
     Active Substance: PREDNISONE
     Dosage: 5 MG, UNK
     Route: 065

REACTIONS (7)
  - Drug ineffective [Unknown]
  - Feeling abnormal [Unknown]
  - Anxiety [Unknown]
  - Fatigue [Unknown]
  - Haemoglobin decreased [Unknown]
  - Somnolence [Unknown]
  - Contusion [Unknown]

NARRATIVE: CASE EVENT DATE: 2018
